FAERS Safety Report 6341491-9 (Version None)
Quarter: 2009Q3

REPORT INFORMATION
  Report Type: 
  Country: None (occurrence: None)
  Receive Date: 20090904
  Receipt Date: 20090826
  Transmission Date: 20100115
  Serious: Yes (Other)
  Sender: FDA-Public Use
  Company Number: US-JNJFOC-20090900274

PATIENT
  Sex: Female

DRUGS (4)
  1. EXTRA STRENGTH TYLENOL [Suspect]
     Indication: INSOMNIA
     Dosage: TAKING 20 TO 30 PILLS EVERY DAY FOR SEVERAL MONTHS.
  2. DIDREX [Concomitant]
  3. DOXYCYCLINE [Concomitant]
  4. PROZAC [Concomitant]

REACTIONS (3)
  - DEPENDENCE [None]
  - INTENTIONAL DRUG MISUSE [None]
  - INTENTIONAL OVERDOSE [None]
